FAERS Safety Report 4471053-X (Version None)
Quarter: 2004Q4

REPORT INFORMATION
  Report Type: 
  Country: None (occurrence: None)
  Receive Date: 20041011
  Receipt Date: 20041004
  Transmission Date: 20050328
  Serious: Yes (Other)
  Sender: FDA-Public Use
  Company Number: NL-GLAXOSMITHKLINE-B0347371A

PATIENT
  Age: 24 Year
  Sex: Male

DRUGS (1)
  1. ZYBAN [Suspect]
     Route: 065
     Dates: start: 20041001, end: 20041002

REACTIONS (4)
  - AGGRESSION [None]
  - CRYING [None]
  - DELUSION [None]
  - DRY MOUTH [None]
